FAERS Safety Report 5938646-1 (Version None)
Quarter: 2008Q4

REPORT INFORMATION
  Report Type: 
  Country: None (occurrence: None)
  Receive Date: 20081103
  Receipt Date: 20081022
  Transmission Date: 20090506
  Serious: Yes (Death, Life-Threatening, Hospitalization)
  Sender: FDA-Public Use
  Company Number: DE-ROCHE-561078

PATIENT
  Sex: Male

DRUGS (2)
  1. XELODA [Suspect]
     Route: 048
     Dates: start: 20080404, end: 20080416
  2. ZOSTEX [Interacting]
     Indication: HERPES ZOSTER
     Route: 048
     Dates: start: 20080407, end: 20080416

REACTIONS (14)
  - ANAEMIA [None]
  - BONE MARROW FAILURE [None]
  - DEATH [None]
  - DRUG INTERACTION [None]
  - GENERAL PHYSICAL HEALTH DETERIORATION [None]
  - HERPES ZOSTER [None]
  - NECROSIS [None]
  - NEUTROPENIA [None]
  - NEUTROPENIC SEPSIS [None]
  - PNEUMONIA [None]
  - SEPSIS [None]
  - SEPTIC SHOCK [None]
  - TACHYARRHYTHMIA [None]
  - THROMBOCYTOPENIA [None]
